FAERS Safety Report 5373035-2 (Version None)
Quarter: 2007Q2

REPORT INFORMATION
  Report Type: 
  Country: None (occurrence: None)
  Receive Date: 20070619
  Receipt Date: 20070412
  Transmission Date: 20071010
  Serious: No
  Sender: FDA-Public Use
  Company Number: 2007US000883

PATIENT
  Age: 84 Year
  Sex: Male

DRUGS (4)
  1. VESICARE [Suspect]
     Indication: DRUG USE FOR UNKNOWN INDICATION
     Dosage: 5 MG, BID, ORAL; 5 MG, UID/QD, ORAL
     Route: 048
     Dates: start: 20070411
  2. VESICARE [Suspect]
     Indication: DRUG USE FOR UNKNOWN INDICATION
     Dosage: 5 MG, BID, ORAL; 5 MG, UID/QD, ORAL
     Route: 048
     Dates: start: 20070417
  3. COMTAN [Concomitant]
  4. ZOLOFT [Concomitant]

REACTIONS (3)
  - AGITATION [None]
  - ANGER [None]
  - HALLUCINATION [None]
